FAERS Safety Report 9890373 (Version 1)
Quarter: 2014Q1

REPORT INFORMATION
  Report Type: Report from Study
  Country: US (occurrence: US)
  Receive Date: 20140212
  Receipt Date: 20140212
  Transmission Date: 20141002
  Serious: Yes (Other)
  Sender: FDA-Public Use
  Company Number: US-ROCHE-1342976

PATIENT
  Age: 14 Year
  Sex: Male
  Weight: 58.11 kg

DRUGS (2)
  1. NUTROPIN AQ [Suspect]
     Indication: BODY HEIGHT BELOW NORMAL
     Route: 058
     Dates: start: 200907, end: 20130823
  2. NUTROPIN AQ [Suspect]
     Route: 058
     Dates: start: 20130823

REACTIONS (2)
  - Growth retardation [Unknown]
  - Pain in extremity [Unknown]
